FAERS Safety Report 9332542 (Version 2)
Quarter: 2013Q2

REPORT INFORMATION
  Report Type: Spontaneous
  Country: DE (occurrence: DE)
  Receive Date: 20130606
  Receipt Date: 20130614
  Transmission Date: 20140414
  Serious: Yes (Hospitalization)
  Sender: FDA-Public Use
  Company Number: DE-JNJFOC-20130523267

PATIENT
  Age: 71 Year
  Sex: Female
  Weight: 93 kg

DRUGS (8)
  1. XARELTO [Suspect]
     Indication: EMBOLISM VENOUS
     Route: 048
     Dates: start: 201211
  2. XARELTO [Suspect]
     Indication: PELVIC VENOUS THROMBOSIS
     Route: 048
     Dates: start: 201211
  3. XARELTO [Suspect]
     Indication: DEEP VEIN THROMBOSIS
     Route: 048
     Dates: start: 201211
  4. VALSARTAN [Concomitant]
     Route: 065
  5. METFORMIN [Concomitant]
     Route: 065
  6. PANTOPRAZOLE [Concomitant]
     Route: 065
  7. ASS [Concomitant]
     Route: 065
  8. AMLODIPINE [Concomitant]
     Route: 065

REACTIONS (1)
  - Ischaemic cerebral infarction [Unknown]
